FAERS Safety Report 7997254-1 (Version None)
Quarter: 2011Q4

REPORT INFORMATION
  Report Type: 
  Country: None (occurrence: None)
  Receive Date: 20111208
  Receipt Date: 20111128
  Transmission Date: 20120403
  Serious: Yes (Hospitalization)
  Sender: FDA-Public Use
  Company Number: 2011030444

PATIENT
  Age: 52 Year
  Sex: Female

DRUGS (14)
  1. TAMOXIFEN CITRATE [Concomitant]
  2. TRAMADOL HCL [Concomitant]
  3. ACETAMINOPHEN [Concomitant]
  4. AMITRIPTYLIN (AMITRIPTYLINE HYDROCHLORIDE) [Concomitant]
  5. SANDOGLOBULIN [Suspect]
     Indication: CHRONIC INFLAMMATORY DEMYELINATING POLYRADICULONEUROPATHY
     Dosage: INTRAVENOUS (NOT OTHERWISE SPECIFIED)
     Route: 042
     Dates: end: 20070901
  6. SANDOGLOBULIN [Suspect]
     Indication: CHRONIC INFLAMMATORY DEMYELINATING POLYRADICULONEUROPATHY
     Dosage: INTRAVENOUS (NOT OTHERWISE SPECIFIED)
     Route: 042
     Dates: start: 20080211, end: 20080214
  7. CALCIUM ACETATE [Concomitant]
  8. DILTIAZEM HCL [Concomitant]
  9. LEUPROLIDE ACETATE [Concomitant]
  10. GABAPENTIN [Concomitant]
  11. PANTOPRAZOLE [Concomitant]
  12. URAPIDIL (URAPIDIL) [Concomitant]
  13. KETOPROFEN [Concomitant]
  14. CLONAZEPAM [Concomitant]

REACTIONS (8)
  - IATROGENIC INJURY [None]
  - CSF NEUTROPHIL COUNT INCREASED [None]
  - ACINETOBACTER TEST POSITIVE [None]
  - BACTERIAL TEST POSITIVE [None]
  - ESCHERICHIA TEST POSITIVE [None]
  - MENINGITIS ASEPTIC [None]
  - PYREXIA [None]
  - MENINGISM [None]
